FAERS Safety Report 9319675 (Version 1)
Quarter: 2013Q2

REPORT INFORMATION
  Report Type: Report from Study
  Country: US (occurrence: US)
  Receive Date: 20130530
  Receipt Date: 20130530
  Transmission Date: 20140414
  Serious: Yes (Other)
  Sender: FDA-Public Use
  Company Number: US-ABBOTT-13P-163-1069512-00

PATIENT
  Sex: Female
  Weight: 62.2 kg

DRUGS (5)
  1. HUMIRA [Suspect]
     Indication: CROHN^S DISEASE
     Dates: start: 2010
  2. HUMIRA [Suspect]
     Dates: start: 2011, end: 201202
  3. HUMIRA [Suspect]
     Dates: start: 201212
  4. ASACOL [Concomitant]
     Indication: CROHN^S DISEASE
     Dosage: 2 TABLETS IN AM; 1 TABLET AT HOUR OF SLEEP
  5. 6-MP [Concomitant]
     Indication: CROHN^S DISEASE
     Dosage: 75 MG DAILY

REACTIONS (4)
  - Crohn^s disease [Recovered/Resolved]
  - Intestinal fistula [Recovered/Resolved]
  - Crohn^s disease [Recovered/Resolved]
  - Drug ineffective [Recovered/Resolved]
